FAERS Safety Report 15776566 (Version 5)
Quarter: 2019Q1

REPORT INFORMATION
  Report Type: Spontaneous
  Country: US (occurrence: US)
  Receive Date: 20181231
  Receipt Date: 20190201
  Transmission Date: 20190417
  Serious: No
  Sender: FDA-Public Use
  Company Number: US-PFIZER INC-2018533026

PATIENT
  Age: 54 Year
  Sex: Female

DRUGS (6)
  1. IMODIUM [Concomitant]
     Active Substance: LOPERAMIDE HYDROCHLORIDE
     Indication: COLITIS
     Dosage: UNK [I TAKE UP TO 9 PER DAY, 2 MG, I WILL JUST SAY]
     Route: 048
  2. TRINTELLIX [Concomitant]
     Active Substance: VORTIOXETINE HYDROBROMIDE
     Indication: DEPRESSION
     Dosage: 5 MG, 1X/DAY (ONCE AT NIGHT)
     Route: 048
  3. ALPRAZOLAM. [Concomitant]
     Active Substance: ALPRAZOLAM
     Indication: SLEEP DISORDER
     Dosage: 1.5 MG, 1X/DAY (AT NIGHT)
     Route: 048
  4. ESTRING [Suspect]
     Active Substance: ESTRADIOL
     Indication: ATROPHIC VULVOVAGINITIS
     Dosage: UNK [EVERY 3 MONTHS]
     Route: 067
     Dates: start: 2018
  5. DICYCLOMINE [Concomitant]
     Active Substance: DICYCLOMINE HYDROCHLORIDE
     Indication: GASTROINTESTINAL PAIN
     Dosage: 10 MG, AS NEEDED
     Route: 048
  6. ESTRING [Suspect]
     Active Substance: ESTRADIOL
     Indication: VULVOVAGINAL PAIN

REACTIONS (7)
  - Vulvovaginal discomfort [Not Recovered/Not Resolved]
  - Vaginal haemorrhage [Unknown]
  - Vulvovaginal pain [Not Recovered/Not Resolved]
  - Therapeutic response unexpected [Unknown]
  - Vulvovaginal burning sensation [Not Recovered/Not Resolved]
  - Product dose omission [Unknown]
  - Dyspareunia [Not Recovered/Not Resolved]

NARRATIVE: CASE EVENT DATE: 2018
